FAERS Safety Report 14267758 (Version 1)
Quarter: 2017Q4

REPORT INFORMATION
  Report Type: Spontaneous
  Country: US (occurrence: US)
  Receive Date: 20171211
  Receipt Date: 20171211
  Transmission Date: 20180321
  Serious: No
  Sender: FDA-Public Use
  Company Number: US-ROCHE-1929260

PATIENT
  Sex: Female

DRUGS (10)
  1. LUCENTIS [Suspect]
     Active Substance: RANIBIZUMAB
     Indication: CATARACT NUCLEAR
     Dosage: ADMINISTRATION BY PHYSICIAN INTO LEFT EYE
     Route: 050
  2. SULFACETAMID [Concomitant]
  3. CARVEDILOL. [Concomitant]
     Active Substance: CARVEDILOL
     Route: 048
  4. GLIPIZIDE. [Concomitant]
     Active Substance: GLIPIZIDE
     Route: 065
  5. LIPITOR [Concomitant]
     Active Substance: ATORVASTATIN CALCIUM
     Route: 048
  6. JANUVIA [Concomitant]
     Active Substance: SITAGLIPTIN PHOSPHATE
     Route: 065
  7. RAMIPRIL. [Concomitant]
     Active Substance: RAMIPRIL
     Route: 048
  8. AMOXICILLIN. [Concomitant]
     Active Substance: AMOXICILLIN
     Route: 048
  9. ALPRAZOLAM. [Concomitant]
     Active Substance: ALPRAZOLAM
     Route: 048
  10. ASPIRIN. [Concomitant]
     Active Substance: ASPIRIN
     Route: 048

REACTIONS (1)
  - Rash pruritic [Not Recovered/Not Resolved]
